FAERS Safety Report 4973787-7 (Version None)
Quarter: 2006Q2

REPORT INFORMATION
  Report Type: 
  Country: None (occurrence: None)
  Receive Date: 20060414
  Receipt Date: 20051116
  Transmission Date: 20061013
  Serious: Yes (Other)
  Sender: FDA-Public Use
  Company Number: US-MERCK-0511USA03018

PATIENT
  Age: 74 Year
  Sex: Male
  Weight: 114 kg

DRUGS (5)
  1. VIOXX [Suspect]
     Indication: ARTHRITIS
     Route: 048
     Dates: start: 19991222, end: 20030922
  2. VIOXX [Suspect]
     Route: 048
     Dates: start: 19991222, end: 20030922
  3. ASPIRIN [Concomitant]
     Route: 065
  4. VIAGRA [Concomitant]
     Indication: ERECTILE DYSFUNCTION
     Route: 065
  5. ACIPHEX [Concomitant]
     Route: 065

REACTIONS (9)
  - ANEURYSM [None]
  - BLOOD POTASSIUM DECREASED [None]
  - CORONARY ARTERY DISEASE [None]
  - DYSPEPSIA [None]
  - GASTROOESOPHAGEAL REFLUX DISEASE [None]
  - HYPERTENSION [None]
  - MYOCARDIAL INFARCTION [None]
  - OBESITY [None]
  - OEDEMA PERIPHERAL [None]
